FAERS Safety Report 8118389-9 (Version None)
Quarter: 2012Q1

REPORT INFORMATION
  Report Type: 
  Country: None (occurrence: None)
  Receive Date: 20120207
  Receipt Date: 20120128
  Transmission Date: 20120608
  Serious: Yes (Other)
  Sender: FDA-Public Use
  Company Number: US-BAYER-2011-082110

PATIENT
  Age: 53 Year
  Sex: Female
  Weight: 108.84 kg

DRUGS (4)
  1. YASMIN [Suspect]
     Indication: PREMENSTRUAL SYNDROME
     Dosage: UNK
     Dates: start: 20021001, end: 20030201
  2. BENADRYL [Concomitant]
     Dosage: UNK
     Route: 048
     Dates: start: 20060911
  3. BAYER BACK AND BODY [Concomitant]
     Dosage: UNK
     Route: 048
     Dates: start: 20060911
  4. DEPO-PROVERA [Concomitant]
     Dosage: UNK

REACTIONS (7)
  - INJURY [None]
  - CHOLECYSTITIS CHRONIC [None]
  - ABNORMAL WEIGHT GAIN [None]
  - PAIN [None]
  - GALLBLADDER PAIN [None]
  - GALLBLADDER INJURY [None]
  - BACK PAIN [None]
